FAERS Safety Report 21702194 (Version 1)
Quarter: 2022Q4

REPORT INFORMATION
  Report Type: Spontaneous
  Country: US (occurrence: US)
  Receive Date: 20221208
  Receipt Date: 20221208
  Transmission Date: 20230112
  Serious: No
  Sender: FDA-Public Use
  Company Number: US-BAUSCHBL-2022BNL002461

PATIENT
  Age: 77 Year
  Sex: Female

DRUGS (2)
  1. TIMOPTIC [Suspect]
     Active Substance: TIMOLOL MALEATE
     Indication: Glaucoma
     Route: 047
  2. TIMOPTIC [Suspect]
     Active Substance: TIMOLOL MALEATE

REACTIONS (3)
  - Instillation site infection [Unknown]
  - Inappropriate schedule of product administration [Unknown]
  - Product storage error [Unknown]
